FAERS Safety Report 4357887-0 (Version None)
Quarter: 2004Q2

REPORT INFORMATION
  Report Type: 
  Country: None (occurrence: None)
  Receive Date: 20040510
  Receipt Date: 20040422
  Transmission Date: 20050107
  Serious: No
  Sender: FDA-Public Use
  Company Number: 10054092-04A16G50-A

PATIENT
  Age: 44 Year
  Sex: Male

DRUGS (8)
  1. FPB1307G-SODIUM CHLORIDE 0.9%, 100 ML [Suspect]
     Indication: ACUTE MYELOID LEUKAEMIA
     Dosage: 100 ML, INTRAVENOUS
     Route: 042
     Dates: end: 20040330
  2. CYTARABINE [Concomitant]
  3. DAUNORUBICIN HCL [Concomitant]
  4. ETOPOSIDE [Concomitant]
  5. ALLOPURINOL [Concomitant]
  6. GRANISETRON [Concomitant]
  7. DEXAMETHASONE [Concomitant]
  8. METOCLOPRAMIDE [Concomitant]

REACTIONS (5)
  - DYSPNOEA [None]
  - FLUSHING [None]
  - HYPERHIDROSIS [None]
  - TACHYCARDIA [None]
  - THROAT TIGHTNESS [None]
